FAERS Safety Report 5924807-4 (Version None)
Quarter: 2008Q4

REPORT INFORMATION
  Report Type: 
  Country: None (occurrence: None)
  Receive Date: 20081017
  Receipt Date: 20081017
  Transmission Date: 20090506
  Serious: Yes (Life-Threatening, Disabling, Other)
  Sender: FDA-Public Use
  Company Number: None

PATIENT
  Age: 73 Year
  Sex: Male
  Weight: 89.8122 kg

DRUGS (2)
  1. LAMICTAL [Suspect]
     Dosage: 25MG.50MG.  100MG ONE A DAY PO
     Route: 048
     Dates: start: 20080801, end: 20080905
  2. LAMOTRIGINE [Suspect]
     Dosage: 100 MG ONE A DAY PO
     Route: 048
     Dates: start: 20080905, end: 20080910

REACTIONS (13)
  - ABASIA [None]
  - ASTHENIA [None]
  - BLOOD CHLORIDE DECREASED [None]
  - BLOOD GLUCOSE INCREASED [None]
  - FATIGUE [None]
  - INSOMNIA [None]
  - MYALGIA [None]
  - PAIN [None]
  - PRODUCT QUALITY ISSUE [None]
  - RENAL IMPAIRMENT [None]
  - THERAPEUTIC AGENT TOXICITY [None]
  - TREMOR [None]
  - VISION BLURRED [None]
